FAERS Safety Report 8766896 (Version 1)
Quarter: 2012Q4

REPORT INFORMATION
  Report Type: 
  Country: US (occurrence: US)
  Receive Date: 20120904
  Receipt Date: 20120904
  Transmission Date: 20130627
  Serious: Yes (Hospitalization, Other)
  Sender: FDA-Public Use
  Company Number: US-JNJFOC-20120812814

PATIENT
  Age: 30 Year
  Sex: Female
  Weight: 63.5 kg

DRUGS (1)
  1. INVEGA SUSTENNA [Suspect]
     Indication: SCHIZOPHRENIA
     Route: 030
     Dates: start: 201206

REACTIONS (5)
  - Psychotic disorder [Recovered/Resolved]
  - Drug dose omission [Recovered/Resolved]
  - Device leakage [Unknown]
  - Accidental exposure to product [Unknown]
  - Device malfunction [Unknown]
